FAERS Safety Report 14303317 (Version 1)
Quarter: 2017Q4

REPORT INFORMATION
  Report Type: Spontaneous
  Country: FR (occurrence: FR)
  Receive Date: 20171219
  Receipt Date: 20171219
  Transmission Date: 20180321
  Serious: Yes (Hospitalization, Other)
  Sender: FDA-Public Use
  Company Number: FR-OTSUKA-17231242

PATIENT
  Age: 91 Year
  Sex: Female

DRUGS (1)
  1. ABILIFY [Suspect]
     Active Substance: ARIPIPRAZOLE
     Indication: PRODUCT USED FOR UNKNOWN INDICATION
     Dosage: UNK
     Route: 048
     Dates: start: 201207

REACTIONS (5)
  - Off label use [Unknown]
  - Gait disturbance [Unknown]
  - Dysarthria [Unknown]
  - Seizure [Unknown]
  - Delirium [Unknown]

NARRATIVE: CASE EVENT DATE: 201207
